FAERS Safety Report 20877295 (Version 1)
Quarter: 2022Q2

REPORT INFORMATION
  Report Type: Spontaneous
  Country: CN (occurrence: CN)
  Receive Date: 20220526
  Receipt Date: 20220526
  Transmission Date: 20220721
  Serious: Yes (Other)
  Sender: FDA-Public Use
  Company Number: CN-009507513-2205CHN006356

PATIENT
  Age: 58 Year
  Sex: Female
  Weight: 55 kg

DRUGS (2)
  1. CILASTATIN SODIUM\IMIPENEM [Suspect]
     Active Substance: CILASTATIN SODIUM\IMIPENEM
     Indication: Infection
     Dosage: 1 GRAM IVGTT Q8H
     Route: 041
     Dates: start: 20220428, end: 20220505
  2. SODIUM CHLORIDE [Concomitant]
     Active Substance: SODIUM CHLORIDE
     Indication: Infection
     Dosage: 100 ML IVGTT Q8H
     Route: 041
     Dates: start: 20220428, end: 20220505

REACTIONS (3)
  - Activated partial thromboplastin time prolonged [Recovering/Resolving]
  - Coagulopathy [Recovering/Resolving]
  - Prothrombin time abnormal [Recovering/Resolving]

NARRATIVE: CASE EVENT DATE: 20220429
